FAERS Safety Report 5132966-9 (Version None)
Quarter: 2006Q4

REPORT INFORMATION
  Report Type: 
  Country: None (occurrence: None)
  Receive Date: 20061017
  Receipt Date: 20061002
  Transmission Date: 20070319
  Serious: Yes (Hospitalization, Disabling, Other)
  Sender: FDA-Public Use
  Company Number: 02100-JPN-05-0083

PATIENT
  Age: 80 Year
  Sex: Male

DRUGS (2)
  1. CILOSTAZOL [Suspect]
     Indication: LACUNAR INFARCTION
     Dosage: 200 MG; ORAL
     Route: 048
     Dates: start: 20040625, end: 20050313
  2. CILOSTAZOL [Suspect]
     Indication: LACUNAR INFARCTION
     Dosage: 200 MG; ORAL
     Route: 048
     Dates: start: 20050418, end: 20060718

REACTIONS (28)
  - APNOEIC ATTACK [None]
  - BLOOD BILIRUBIN INCREASED [None]
  - BRAIN NATRIURETIC PEPTIDE INCREASED [None]
  - CARDIAC FAILURE ACUTE [None]
  - CARDIOMEGALY [None]
  - CEREBRAL INFARCTION [None]
  - CHOLANGITIS [None]
  - CONDITION AGGRAVATED [None]
  - DEPRESSED LEVEL OF CONSCIOUSNESS [None]
  - DIABETES MELLITUS [None]
  - DIABETES MELLITUS INADEQUATE CONTROL [None]
  - DIARRHOEA [None]
  - DISEASE RECURRENCE [None]
  - DYSPEPSIA [None]
  - DYSPHAGIA [None]
  - EXOCRINE PANCREATIC FUNCTION TEST ABNORMAL [None]
  - GASTRIC POLYPS [None]
  - GASTRITIS [None]
  - GASTRODUODENITIS [None]
  - GASTROINTESTINAL HAEMORRHAGE [None]
  - HEPATIC ENZYME INCREASED [None]
  - HYPOKALAEMIA [None]
  - INFLAMMATION [None]
  - INFLUENZA [None]
  - ORTHOPNOEA [None]
  - OXYGEN SATURATION DECREASED [None]
  - RASH [None]
  - STRESS [None]
